FAERS Safety Report 6422422-X (Version None)
Quarter: 2009Q4

REPORT INFORMATION
  Report Type: 
  Country: None (occurrence: None)
  Receive Date: 20091030
  Receipt Date: 20091017
  Transmission Date: 20100525
  Serious: Yes (Hospitalization)
  Sender: FDA-Public Use
  Company Number: US-RB-017449-09

PATIENT
  Age: 49 Year
  Sex: Female

DRUGS (2)
  1. SUBOXONE [Suspect]
     Route: 060
     Dates: start: 20090701
  2. SUBOXONE [Suspect]
     Route: 065
     Dates: start: 20060101, end: 20090516

REACTIONS (6)
  - COMA [None]
  - DRUG DEPENDENCE [None]
  - HIP FRACTURE [None]
  - LIMB CRUSHING INJURY [None]
  - RIB FRACTURE [None]
  - ROAD TRAFFIC ACCIDENT [None]
